FAERS Safety Report 26186408 (Version 1)
Quarter: 2025Q4

REPORT INFORMATION
  Report Type: Spontaneous
  Country: US (occurrence: US)
  Receive Date: 20251222
  Receipt Date: 20251222
  Transmission Date: 20260118
  Serious: No
  Sender: Kenvue
  Company Number: US-KENVUE-20251204712

PATIENT
  Sex: Female

DRUGS (1)
  1. ZYRTEC [Suspect]
     Active Substance: CETIRIZINE HYDROCHLORIDE
     Indication: Upper-airway cough syndrome
     Dosage: 1 DOSAGE FORM, ONCE A DAY
     Route: 065

REACTIONS (1)
  - Product use in unapproved indication [Unknown]
